FAERS Safety Report 14068215 (Version 1)
Quarter: 2017Q4

REPORT INFORMATION
  Report Type: Spontaneous
  Country: HU (occurrence: HU)
  Receive Date: 20171010
  Receipt Date: 20171010
  Transmission Date: 20180321
  Serious: Yes (Disabling, Other)
  Sender: FDA-Public Use
  Company Number: HU-ROCHE-1970139

PATIENT
  Age: 35 Year
  Sex: Female

DRUGS (1)
  1. ACTILYSE [Suspect]
     Active Substance: ALTEPLASE
     Indication: BASILAR ARTERY THROMBOSIS
     Route: 065

REACTIONS (4)
  - Quadriparesis [Recovered/Resolved with Sequelae]
  - Off label use [Unknown]
  - Nystagmus [Unknown]
  - Ataxia [Recovered/Resolved with Sequelae]
